FAERS Safety Report 7197912-5 (Version None)
Quarter: 2010Q4

REPORT INFORMATION
  Report Type: 
  Country: None (occurrence: None)
  Receive Date: 20101227
  Receipt Date: 20101220
  Transmission Date: 20110411
  Serious: Yes (Other)
  Sender: FDA-Public Use
  Company Number: US-BAYER-2010-007258

PATIENT
  Sex: Female

DRUGS (1)
  1. YAZ [Suspect]
     Indication: PRODUCT USED FOR UNKNOWN INDICATION
     Dosage: UNK
     Dates: start: 20070701, end: 20071201

REACTIONS (5)
  - ANXIETY [None]
  - DEPRESSION [None]
  - GALLBLADDER DISORDER [None]
  - PAIN [None]
  - POST CHOLECYSTECTOMY SYNDROME [None]
